FAERS Safety Report 4523292-7 (Version None)
Quarter: 2004Q4

REPORT INFORMATION
  Report Type: 
  Country: None (occurrence: None)
  Receive Date: 20041210
  Receipt Date: 20041201
  Transmission Date: 20050328
  Serious: Yes (Hospitalization)
  Sender: FDA-Public Use
  Company Number: BR-JNJFOC-20041201015

PATIENT
  Age: 38 Year
  Sex: Female

DRUGS (1)
  1. HALDOL DECANOATE [Suspect]
     Indication: DISSOCIATIVE DISORDER
     Dosage: PRES. DOSE WAS HALOPERIDOL 5MG; GIVEN 2 AMP./DAY HALOPERIDOL DEC.FOR 3 DAYS TO 4 AMP/DAY FOR 4 DAYS
     Route: 030
     Dates: start: 20030217, end: 20030223

REACTIONS (9)
  - ANAEMIA [None]
  - CARDIO-RESPIRATORY ARREST [None]
  - HYPOALBUMINAEMIA [None]
  - HYPOCALCAEMIA [None]
  - MEDICATION ERROR [None]
  - NEUROLEPTIC MALIGNANT SYNDROME [None]
  - OVERDOSE [None]
  - RESPIRATORY ALKALOSIS [None]
  - RESPIRATORY TRACT INFECTION [None]
